FAERS Safety Report 5345779-X (Version None)
Quarter: 2007Q2

REPORT INFORMATION
  Report Type: 
  Country: None (occurrence: None)
  Receive Date: 20070426
  Receipt Date: 20070202
  Transmission Date: 20071010
  Serious: Yes (Other)
  Sender: FDA-Public Use
  Company Number: US-JNJFOC-20061105656

PATIENT
  Age: 44 Year
  Sex: Male
  Weight: 81.6475 kg

DRUGS (3)
  1. ULTRAM [Suspect]
     Indication: PAIN
     Dosage: 50 MG, ORAL
     Route: 048
  2. GENERIC TRAMADOL (TRAMADOL HYDROCHLORIDE) UNSPECIFIED [Suspect]
     Indication: BACK PAIN
  3. UNKNOWN ANTIDEPRESSANT (ANTIDEPRESSANTS) [Concomitant]

REACTIONS (2)
  - CONVULSION [None]
  - WEIGHT DECREASED [None]
